FAERS Safety Report 8770100 (Version 1)
Quarter: 2012Q4

REPORT INFORMATION
  Report Type: 
  Country: NL (occurrence: NL)
  Receive Date: 20120904
  Receipt Date: 20120904
  Transmission Date: 20130627
  Serious: Yes (Other)
  Sender: FDA-Public Use
  Company Number: NL-AMGEN-NLDSP2012055294

PATIENT
  Age: 53 Year

DRUGS (2)
  1. ENBREL [Suspect]
     Indication: ANKYLOSING SPONDYLITIS
     Dosage: 25 mg, 2x/week
     Dates: start: 2004
  2. ENBREL [Suspect]
     Dosage: 25 mg, weekly

REACTIONS (1)
  - Iridocyclitis [Recovering/Resolving]
